FAERS Safety Report 14794468 (Version 1)
Quarter: 2018Q2

REPORT INFORMATION
  Report Type: Spontaneous
  Country: JP (occurrence: JP)
  Receive Date: 20180423
  Receipt Date: 20180423
  Transmission Date: 20180711
  Serious: Yes (Other)
  Sender: FDA-Public Use
  Company Number: JP-PFIZER INC-2018160015

PATIENT
  Age: 4 Decade
  Sex: Female

DRUGS (1)
  1. CABASER 1.0MG [Suspect]
     Active Substance: CABERGOLINE
     Dosage: 1 MG, WEEKLY

REACTIONS (1)
  - Pericardial effusion [Unknown]
